FAERS Safety Report 14807769 (Version 1)
Quarter: 2018Q2

REPORT INFORMATION
  Report Type: Spontaneous
  Country: US (occurrence: US)
  Receive Date: 20180425
  Receipt Date: 20180425
  Transmission Date: 20180711
  Serious: Yes (Other)
  Sender: FDA-Public Use
  Company Number: US-PFIZER INC-2018162916

PATIENT
  Sex: Male

DRUGS (1)
  1. DILANTIN [Suspect]
     Active Substance: PHENYTOIN
     Dosage: UNK
     Dates: end: 20170214

REACTIONS (6)
  - Balance disorder [Unknown]
  - Vertigo CNS origin [Unknown]
  - Impaired driving ability [Unknown]
  - Brain injury [Recovering/Resolving]
  - Coordination abnormal [Unknown]
  - Movement disorder [Unknown]
